FAERS Safety Report 6504960-4 (Version None)
Quarter: 2009Q4

REPORT INFORMATION
  Report Type: 
  Country: None (occurrence: None)
  Receive Date: 20091218
  Receipt Date: 20091211
  Transmission Date: 20100525
  Serious: Yes (Death)
  Sender: FDA-Public Use
  Company Number: DE-JNJFOC-20090809519

PATIENT
  Sex: Female

DRUGS (4)
  1. REOPRO [Suspect]
     Route: 042
     Dates: start: 20090818, end: 20090818
  2. REOPRO [Suspect]
     Indication: DRUG USE FOR UNKNOWN INDICATION
     Dosage: @5:30
     Route: 042
     Dates: start: 20090818, end: 20090818
  3. GLIMEPIRIDE [Concomitant]
  4. GLUCOPHAGE [Concomitant]

REACTIONS (1)
  - LACTIC ACIDOSIS [None]
